FAERS Safety Report 4420118-7 (Version None)
Quarter: 2004Q3

REPORT INFORMATION
  Report Type: 
  Country: None (occurrence: None)
  Receive Date: 20040809
  Receipt Date: 20040322
  Transmission Date: 20050211
  Serious: No
  Sender: FDA-Public Use
  Company Number: US-GLAXOSMITHKLINE-A0503871A

PATIENT
  Age: 41 Year
  Sex: Male

DRUGS (3)
  1. PAXIL [Suspect]
     Dosage: 10MG PER DAY
     Route: 048
     Dates: start: 20040213
  2. ACIPHEX [Concomitant]
  3. ALCOHOL [Concomitant]

REACTIONS (1)
  - DIZZINESS [None]
